FAERS Safety Report 5812368-X (Version None)
Quarter: 2008Q3

REPORT INFORMATION
  Report Type: 
  Country: None (occurrence: None)
  Receive Date: 20080716
  Receipt Date: 20080704
  Transmission Date: 20090109
  Serious: Yes (Other)
  Sender: FDA-Public Use
  Company Number: IE-PFIZER INC-2008052158

PATIENT
  Sex: Male
  Weight: 84.4 kg

DRUGS (6)
  1. CHANTIX [Suspect]
     Indication: SMOKING CESSATION THERAPY
     Route: 048
  2. LANTUS [Concomitant]
     Route: 058
  3. HUMALOG [Concomitant]
     Route: 058
  4. ACETYLSALICYLIC ACID SRT [Concomitant]
  5. LIPITOR [Concomitant]
  6. TOLTERODINE TARTRATE [Concomitant]

REACTIONS (1)
  - HYPERGLYCAEMIA [None]
